FAERS Safety Report 4714064-9 (Version None)
Quarter: 2005Q3

REPORT INFORMATION
  Report Type: 
  Country: None (occurrence: None)
  Receive Date: 20050713
  Receipt Date: 20050703
  Transmission Date: 20060218
  Serious: Yes (Other)
  Sender: FDA-Public Use
  Company Number: CHPA2005US01835

PATIENT
  Sex: Male

DRUGS (1)
  1. TRIAMINIC (NCH)(CHLORPHENIRAMINE MALEATE, PHENYLPROPANOLAMINE HYDROCHL [Suspect]

REACTIONS (1)
  - CEREBROVASCULAR ACCIDENT [None]
